FAERS Safety Report 6248678-4 (Version None)
Quarter: 2009Q2

REPORT INFORMATION
  Report Type: 
  Country: None (occurrence: None)
  Receive Date: 20090624
  Receipt Date: 20081216
  Transmission Date: 20091009
  Serious: Yes (Other)
  Sender: FDA-Public Use
  Company Number: US-GDP-08405207

PATIENT
  Age: 57 Year
  Sex: Female

DRUGS (5)
  1. DIFFERIN [Suspect]
     Indication: ACNE
     Dosage: (1 DF QD TOPICAL)
     Route: 061
     Dates: start: 20080101, end: 20080101
  2. MAKE-UP (COSMETICS) [Suspect]
     Indication: THERAPEUTIC SKIN CARE TOPICAL
     Dosage: (TOPICAL)
     Route: 061
  3. CREAM (COSMETICS) [Suspect]
     Indication: THERAPEUTIC SKIN CARE TOPICAL
     Dosage: (TOPICAL)
     Route: 061
  4. DRUG USED IN DIABETES [Concomitant]
  5. ANTIHYPERTENSIVES [Concomitant]

REACTIONS (2)
  - DRY SKIN [None]
  - ERYTHEMA [None]
